FAERS Safety Report 22360206 (Version 1)
Quarter: 2023Q2

REPORT INFORMATION
  Report Type: Spontaneous
  Country: CN (occurrence: CN)
  Receive Date: 20230524
  Receipt Date: 20230524
  Transmission Date: 20230722
  Serious: Yes (Other)
  Sender: FDA-Public Use
  Company Number: CN-002147023-NVSC2023CN115541

PATIENT
  Age: 71 Year
  Sex: Female
  Weight: 55 kg

DRUGS (2)
  1. COSENTYX [Suspect]
     Active Substance: SECUKINUMAB
     Indication: Ankylosing spondylitis
     Dosage: 150 MG
     Route: 058
     Dates: start: 20230315, end: 20230315
  2. COSENTYX [Suspect]
     Active Substance: SECUKINUMAB
     Indication: Iridocyclitis

REACTIONS (4)
  - Erythema [Recovering/Resolving]
  - Swelling face [Recovering/Resolving]
  - Mass [Recovering/Resolving]
  - Product use in unapproved indication [Unknown]

NARRATIVE: CASE EVENT DATE: 20230315
